FAERS Safety Report 4366151-5 (Version None)
Quarter: 2004Q2

REPORT INFORMATION
  Report Type: 
  Country: None (occurrence: None)
  Receive Date: 20040526
  Receipt Date: 20040526
  Transmission Date: 20050107
  Serious: Yes (Hospitalization)
  Sender: FDA-Public Use
  Company Number: None

PATIENT
  Age: 52 Year
  Sex: Female

DRUGS (8)
  1. METHADONE HCL [Suspect]
     Indication: HEADACHE
     Dosage: 40 MG 4 TIMES ORAL
     Route: 048
  2. METHADONE HCL [Suspect]
     Indication: SYSTEMIC LUPUS ERYTHEMATOSUS
     Dosage: 40 MG 4 TIMES ORAL
     Route: 048
  3. PREDNISONE [Concomitant]
  4. SOMA [Concomitant]
  5. XANAX [Concomitant]
  6. NORCO [Concomitant]
  7. PHENERGAN [Concomitant]
  8. DOXEPIN HCL [Concomitant]

REACTIONS (1)
  - RESPIRATORY FAILURE [None]
